FAERS Safety Report 7301197-6 (Version None)
Quarter: 2011Q1

REPORT INFORMATION
  Report Type: 
  Country: None (occurrence: None)
  Receive Date: 20110112
  Receipt Date: 20090323
  Transmission Date: 20110831
  Serious: Yes (Hospitalization)
  Sender: FDA-Public Use
  Company Number: THYM-1000978

PATIENT
  Age: 37 Year
  Sex: Male

DRUGS (4)
  1. THYMOGLOBULIN [Suspect]
     Indication: RENAL TRANSPLANT
     Dosage: 200 MG, INTRAVENOUS
     Route: 042
  2. PREDNISOLONE ACETATE [Concomitant]
  3. METHYLPREDNISOLONE [Concomitant]
  4. TACROLIMUS [Concomitant]

REACTIONS (1)
  - SERUM SICKNESS [None]
